FAERS Safety Report 19041189 (Version 2)
Quarter: 2021Q2

REPORT INFORMATION
  Report Type: Spontaneous
  Country: US (occurrence: US)
  Receive Date: 20210322
  Receipt Date: 20210416
  Transmission Date: 20210717
  Serious: Yes (Other)
  Sender: FDA-Public Use
  Company Number: US-BAYER-2021-109158

PATIENT
  Age: 19 Year
  Sex: Female

DRUGS (3)
  1. MIRENA [Suspect]
     Active Substance: LEVONORGESTREL
     Indication: ENDOMETRIOSIS
     Dosage: 20 ?G PER DAY CONTINUOUSLY
     Route: 015
     Dates: start: 20201223
  2. MIRENA [Suspect]
     Active Substance: LEVONORGESTREL
     Indication: DYSMENORRHOEA
  3. ZOLOFT [Concomitant]
     Active Substance: SERTRALINE HYDROCHLORIDE

REACTIONS (3)
  - Post procedural haemorrhage [None]
  - Genital haemorrhage [Recovering/Resolving]
  - Vaginal haemorrhage [None]

NARRATIVE: CASE EVENT DATE: 20201223
